FAERS Safety Report 24906495 (Version 2)
Quarter: 2025Q1

REPORT INFORMATION
  Report Type: Spontaneous
  Country: JP (occurrence: JP)
  Receive Date: 20250130
  Receipt Date: 20250207
  Transmission Date: 20250408
  Serious: No
  Sender: BAUSCH AND LOMB
  Company Number: JP-BAUSCH-BL-2025-001219

PATIENT
  Age: 73 Year
  Sex: Male

DRUGS (3)
  1. EFINACONAZOLE [Suspect]
     Active Substance: EFINACONAZOLE
     Indication: Dermatophytosis of nail
     Route: 061
     Dates: start: 20240917, end: 20241207
  2. BETAMETHASONE DIPROPIONATE [Concomitant]
     Active Substance: BETAMETHASONE DIPROPIONATE
     Indication: Product used for unknown indication
     Route: 061
  3. LULICONAZOLE [Concomitant]
     Active Substance: LULICONAZOLE
     Indication: Product used for unknown indication
     Route: 061

REACTIONS (2)
  - Application site erosion [Recovered/Resolved]
  - Dermatitis contact [Recovered/Resolved]

NARRATIVE: CASE EVENT DATE: 20241201
